FAERS Safety Report 5956482-7 (Version None)
Quarter: 2008Q4

REPORT INFORMATION
  Report Type: 
  Country: None (occurrence: None)
  Receive Date: 20081118
  Receipt Date: 20081110
  Transmission Date: 20090506
  Serious: Yes (Death)
  Sender: FDA-Public Use
  Company Number: A0684176A

PATIENT
  Age: 58 Year
  Sex: Male
  Weight: 81.8 kg

DRUGS (10)
  1. AVANDIA [Suspect]
     Dosage: 8MG PER DAY
     Dates: start: 20010731, end: 20060215
  2. GLUCOPHAGE [Concomitant]
     Dates: start: 20010731, end: 20060215
  3. METFORMIN HCL [Concomitant]
     Dates: start: 20050101, end: 20060101
  4. DIABETA [Concomitant]
  5. GLUCOTROL [Concomitant]
     Dates: start: 19970101, end: 20010101
  6. GLUCOVANCE [Concomitant]
     Dosage: 2TAB TWICE PER DAY
     Route: 048
  7. ALTACE [Concomitant]
     Dosage: 10MG PER DAY
  8. LIPITOR [Concomitant]
     Dosage: 20MG AT NIGHT
  9. VIAGRA [Concomitant]
     Dosage: 50MG AS REQUIRED
  10. TYLENOL (CAPLET) [Concomitant]

REACTIONS (8)
  - ANXIETY [None]
  - CHEST PAIN [None]
  - HEART INJURY [None]
  - INJURY [None]
  - JOINT SWELLING [None]
  - MYOCARDIAL INFARCTION [None]
  - PAIN [None]
  - RETINAL HAEMORRHAGE [None]
